FAERS Safety Report 9659126 (Version 1)
Quarter: 2013Q4

REPORT INFORMATION
  Report Type: Spontaneous
  Country: US (occurrence: CL)
  Receive Date: 20131031
  Receipt Date: 20131031
  Transmission Date: 20140711
  Serious: Yes (Life-Threatening, Hospitalization, Other)
  Sender: FDA-Public Use
  Company Number: 2013SP007544

PATIENT
  Age: 22 Year
  Sex: Female

DRUGS (5)
  1. HALOPERIDOL DECANOATE [Suspect]
     Indication: PSYCHOTIC DISORDER
     Route: 042
  2. RISPERIDONE [Suspect]
     Indication: PSYCHOTIC DISORDER
  3. LORAZEPAM [Suspect]
     Indication: PSYCHOTIC DISORDER
  4. ZOLPIDEM TARTRATE [Suspect]
     Indication: PSYCHOTIC DISORDER
     Route: 048
  5. CHLORPROMAZINE [Suspect]
     Indication: PSYCHOTIC DISORDER

REACTIONS (12)
  - Neuroleptic malignant syndrome [Recovering/Resolving]
  - Muscle rigidity [Recovering/Resolving]
  - Pyrexia [Recovered/Resolved]
  - Autonomic nervous system imbalance [Recovered/Resolved]
  - Blood creatine phosphokinase increased [Recovering/Resolving]
  - Leukocytosis [Recovering/Resolving]
  - Sedation [Recovering/Resolving]
  - Catatonia [Recovering/Resolving]
  - Stupor [Recovering/Resolving]
  - Cotard^s syndrome [Recovering/Resolving]
  - Depressive delusion [Recovering/Resolving]
  - Hypochondriasis [Recovering/Resolving]
